FAERS Safety Report 17488639 (Version 1)
Quarter: 2020Q1

REPORT INFORMATION
  Report Type: Spontaneous
  Country: US (occurrence: US)
  Receive Date: 20200302
  Receipt Date: 20200302
  Transmission Date: 20200409
  Serious: No
  Sender: FDA-Public Use
  Company Number: None

PATIENT
  Age: 34 Year
  Sex: Female

DRUGS (2)
  1. ENOXAPARIN SOD SYRINGE 40MG/.4ML WINTHROP, US [Suspect]
     Active Substance: ENOXAPARIN SODIUM
     Indication: EMBOLISM VENOUS
     Dates: start: 20200208
  2. ENOXAPARIN SOD SYRINGE 40MG/.4ML WINTHROP, US [Suspect]
     Active Substance: ENOXAPARIN SODIUM
     Indication: VENOUS THROMBOSIS
     Dates: start: 20200208

REACTIONS (1)
  - Fatigue [None]

NARRATIVE: CASE EVENT DATE: 20200211
